FAERS Safety Report 8502796-6 (Version None)
Quarter: 2012Q3

REPORT INFORMATION
  Report Type: 
  Country: None (occurrence: None)
  Receive Date: 20120705
  Receipt Date: 20120705
  Transmission Date: 20120928
  Serious: Yes (Other)
  Sender: FDA-Public Use
  Company Number: None

PATIENT
  Sex: Female
  Weight: 54.4316 kg

DRUGS (1)
  1. NEUPOGEN [Suspect]
     Indication: NEUTROPENIA
     Dosage: 1 INJECTION 7 DAYS SUBDERMAL
     Route: 059

REACTIONS (3)
  - BACK PAIN [None]
  - DRUG RESISTANCE [None]
  - IMPAIRED WORK ABILITY [None]
